FAERS Safety Report 12220071 (Version 1)
Quarter: 2016Q1

REPORT INFORMATION
  Report Type: Spontaneous
  Country: JO (occurrence: JO)
  Receive Date: 20160330
  Receipt Date: 20160330
  Transmission Date: 20160526
  Serious: Yes (Other)
  Sender: FDA-Public Use
  Company Number: JO-009507513-1603JOR012160

PATIENT
  Age: 5 Year
  Sex: Male

DRUGS (5)
  1. LOMUSTINE. [Suspect]
     Active Substance: LOMUSTINE
     Dosage: EIGHT CYCLES OF 5 DAYS TMZ 200 MG/M2/DAY ALTERNATING WITH LOMUSTINE (75MG/M2, DAY 1) EVERY 6 WEEKS
  2. VINCRISTINE SULFATE. [Suspect]
     Active Substance: VINCRISTINE SULFATE
     Dosage: EIGHT CYCLES OF 5 DAYS TMZ 200 MG/M2/DAY ALTERNATING WITH VINCRISTINE SULFATE (1.5 MG/M2, DAYS 1, 8,
  3. TEMOZOLOMIDE. [Suspect]
     Active Substance: TEMOZOLOMIDE
     Dosage: CONCOMITANT WITH IRRADIATION THERAPY
     Route: 048
  4. TEMOZOLOMIDE. [Suspect]
     Active Substance: TEMOZOLOMIDE
     Dosage: 200 MG/M2, QD, OF 5 DAYS EVERY 6 WEEKS, EIGHT CYCLES
     Route: 048
  5. CISPLATIN. [Suspect]
     Active Substance: CISPLATIN
     Dosage: EIGHT CYCLES OF 5 DAYS TMZ 200 MG/M2/DAY ALTERNATING WITH CISPLATIN(75MG/M2, DAY 1) EVERY 6 WEEKS

REACTIONS (3)
  - Renal tubular disorder [Unknown]
  - Deafness neurosensory [Unknown]
  - Febrile neutropenia [Unknown]
